FAERS Safety Report 5730146-7 (Version None)
Quarter: 2008Q2

REPORT INFORMATION
  Report Type: 
  Country: None (occurrence: None)
  Receive Date: 20080505
  Receipt Date: 20080505
  Transmission Date: 20081010
  Serious: Yes (Other)
  Sender: FDA-Public Use
  Company Number: None

PATIENT
  Age: 39 Year
  Sex: Female
  Weight: 92 kg

DRUGS (7)
  1. ZERIT [Suspect]
     Indication: HIV INFECTION
     Dosage: 40 MILLIGRAMS BID PO
     Route: 048
     Dates: start: 20060220, end: 20080417
  2. EPIVIR [Suspect]
     Indication: HIV INFECTION
     Dosage: 150 MILLIGRAMS BID PO
     Route: 048
     Dates: start: 20060220, end: 20080417
  3. VIRAMUNE [Suspect]
     Indication: HIV INFECTION
     Dosage: 600 MILLIGRAMS QD PO
     Route: 048
     Dates: start: 20060220, end: 20080417
  4. VITAMIN B [Concomitant]
  5. ASCORBIC ACID [Concomitant]
  6. BACTRIM [Concomitant]
  7. AMITRIPTYLINE HCL [Concomitant]

REACTIONS (5)
  - ABORTION INCOMPLETE [None]
  - ABORTION SPONTANEOUS [None]
  - DRUG EXPOSURE DURING PREGNANCY [None]
  - DRUG RESISTANCE [None]
  - PREGNANCY [None]
